FAERS Safety Report 25584927 (Version 1)
Quarter: 2025Q3

REPORT INFORMATION
  Report Type: Spontaneous
  Country: US (occurrence: US)
  Receive Date: 20250721
  Receipt Date: 20250721
  Transmission Date: 20251021
  Serious: No
  Sender: MERCK SHARP & DOHME LLC
  Company Number: PR-009507513-2301804

PATIENT
  Sex: Female
  Weight: 62.596 kg

DRUGS (2)
  1. PEMBROLIZUMAB [Suspect]
     Active Substance: PEMBROLIZUMAB
     Indication: Renal cancer
     Route: 065
  2. LENVIMA [Suspect]
     Active Substance: LENVATINIB
     Indication: Renal cancer
     Dosage: 2 CAPSULES EVERY 48 HOURS (ALSO REPORTED AS 20 MG [2X10 MG] 5 DAY PK - COMM)
     Route: 048
     Dates: start: 202505

REACTIONS (1)
  - Adverse drug reaction [Unknown]
